FAERS Safety Report 6945932-5 (Version None)
Quarter: 2010Q3

REPORT INFORMATION
  Report Type: 
  Country: None (occurrence: None)
  Receive Date: 20100827
  Receipt Date: 20100818
  Transmission Date: 20110219
  Serious: Yes (Other)
  Sender: FDA-Public Use
  Company Number: DE-ABBOTT-10P-062-0664859-00

PATIENT
  Sex: Female

DRUGS (4)
  1. ERGENYL CHRONO TABLETS [Suspect]
     Indication: SCHIZOPHRENIA, PARANOID TYPE
  2. ERGENYL CHRONO TABLETS [Suspect]
  3. ZIPRASIDONE HCL [Concomitant]
     Indication: PRODUCT USED FOR UNKNOWN INDICATION
  4. SEROQUEL [Concomitant]
     Indication: PRODUCT USED FOR UNKNOWN INDICATION

REACTIONS (1)
  - THROMBOPHLEBITIS [None]
